FAERS Safety Report 5712243-5 (Version None)
Quarter: 2008Q2

REPORT INFORMATION
  Report Type: 
  Country: None (occurrence: None)
  Receive Date: 20080418
  Receipt Date: 20080409
  Transmission Date: 20081010
  Serious: Yes (Death, Hospitalization)
  Sender: FDA-Public Use
  Company Number: HYCD20080001

PATIENT
  Sex: Male

DRUGS (9)
  1. HYCODAN [Suspect]
  2. COZAAR [Suspect]
  3. COREG [Suspect]
  4. COUMADIN [Suspect]
  5. LANTUS [Suspect]
  6. HUMALOG [Suspect]
  7. REGLAN [Suspect]
  8. LEVAQUIN [Suspect]
  9. AVELOX [Suspect]

REACTIONS (9)
  - CARDIAC ARREST [None]
  - CEREBROVASCULAR ACCIDENT [None]
  - COUGH [None]
  - DYSPHAGIA [None]
  - ELECTROMECHANICAL DISSOCIATION [None]
  - LUNG INFILTRATION [None]
  - MASTICATION DISORDER [None]
  - PNEUMONIA [None]
  - SINUS DISORDER [None]
